FAERS Safety Report 9102528 (Version 1)
Quarter: 2013Q1

REPORT INFORMATION
  Report Type: Spontaneous
  Country: US (occurrence: US)
  Receive Date: 20130219
  Receipt Date: 20130219
  Transmission Date: 20140127
  Serious: Yes (Life-Threatening, Hospitalization)
  Sender: FDA-Public Use
  Company Number: 2013SP000473

PATIENT
  Age: 62 Year
  Sex: Male

DRUGS (2)
  1. LATUDA [Suspect]
     Indication: PRODUCT USED FOR UNKNOWN INDICATION
     Route: 048
  2. ALL OTHER THERAPEUTIC PRODUCTS [Concomitant]
     Indication: PRODUCT USED FOR UNKNOWN INDICATION

REACTIONS (5)
  - Suicide attempt [Recovered/Resolved with Sequelae]
  - Tracheostomy malfunction [Unknown]
  - Mental disorder [Recovered/Resolved with Sequelae]
  - Pneumonia [Unknown]
  - Depression [Unknown]
